FAERS Safety Report 4786873-1 (Version None)
Quarter: 2005Q3

REPORT INFORMATION
  Report Type: 
  Country: None (occurrence: None)
  Receive Date: 20050930
  Receipt Date: 20050916
  Transmission Date: 20060218
  Serious: Yes (Hospitalization)
  Sender: FDA-Public Use
  Company Number: 05-02-06322

PATIENT
  Age: 58 Year
  Sex: Female
  Weight: 58.2872 kg

DRUGS (15)
  1. CETUXIMAB (CETUXIMAB) [Suspect]
     Indication: NON-SMALL CELL LUNG CANCER STAGE IV
     Dosage: 420 MG I.V.
     Route: 042
     Dates: start: 20050816
  2. CARBOPLATIN [Suspect]
     Indication: NON-SMALL CELL LUNG CANCER STAGE IV
     Dosage: 857 MG I.V.
     Route: 042
     Dates: start: 20050823
  3. PACLITAXEL [Suspect]
     Indication: NON-SMALL CELL LUNG CANCER STAGE IV
     Dosage: 378 MG I.V.
     Route: 042
     Dates: start: 20050823
  4. MOTRIN [Concomitant]
  5. ARANESP [Concomitant]
  6. TESSALON [Concomitant]
  7. XALATAN [Concomitant]
  8. TYLENOL ARTHRITIS (PARACETAMOL) [Concomitant]
  9. TYLENOL [Concomitant]
  10. ROBITUSSIN AC (CODEINE PHOS. W/GUAIFENESIN/PHENIRAMINE MAL.) [Concomitant]
  11. MEGACE [Concomitant]
  12. EMLA (EMLA /00675501/) [Concomitant]
  13. CHROMAGEN FORTE (CHROMAGEN /00555001/) [Concomitant]
  14. COMPAZINE (PROCHLORPERAZINE MALEATE) [Concomitant]
  15. COLACE (DOCUSATE SODIUM) [Concomitant]

REACTIONS (21)
  - ABDOMINAL MASS [None]
  - ASTHENIA [None]
  - ATRIAL FIBRILLATION [None]
  - BLOOD CHLORIDE DECREASED [None]
  - CAFFEINE CONSUMPTION [None]
  - CONSTIPATION [None]
  - COUGH [None]
  - DECREASED APPETITE [None]
  - DRUG INEFFECTIVE [None]
  - DYSPNOEA EXERTIONAL [None]
  - FATIGUE [None]
  - GASTROINTESTINAL TOXICITY [None]
  - NAUSEA [None]
  - PALPITATIONS [None]
  - PERIPHERAL SENSORY NEUROPATHY [None]
  - RASH [None]
  - SHOULDER PAIN [None]
  - SINUS TACHYCARDIA [None]
  - UPPER EXTREMITY MASS [None]
  - VOMITING [None]
  - WEIGHT DECREASED [None]
